FAERS Safety Report 5480289-0 (Version None)
Quarter: 2007Q4

REPORT INFORMATION
  Report Type: 
  Country: None (occurrence: None)
  Receive Date: 20071003
  Receipt Date: 20070919
  Transmission Date: 20080405
  Serious: Yes (Life-Threatening)
  Sender: FDA-Public Use
  Company Number: 2007US002287

PATIENT
  Age: 55 Year
  Sex: Male

DRUGS (26)
  1. AMBISOME [Suspect]
     Indication: ANTIFUNGAL PROPHYLAXIS
     Dosage: 1 MG/KG, OTHER, INV NOS
     Route: 042
     Dates: start: 20070918, end: 20070918
  2. ALLOPURINOL [Concomitant]
  3. TREOSULFAN (TREOSULFAN) [Concomitant]
  4. FLUDARABINE PHOSPHATE [Concomitant]
  5. ATG (ANTITHYMOCYTE IMMUNOGLOBULIN) [Concomitant]
  6. RITUXIMAB (RITUXIMAB) [Concomitant]
  7. RAPAMYCIN (SIROLIMUS) [Concomitant]
  8. LEVOFLOXACIN [Concomitant]
  9. ACYCLOVIR [Concomitant]
  10. GANCICLOVIR [Concomitant]
  11. ACETAZOLAMIDE [Concomitant]
  12. OMEPRAZOLE [Concomitant]
  13. BACTRIM [Concomitant]
  14. ONDANSETRON HCL [Concomitant]
  15. DEXAMETHASONE TAB [Concomitant]
  16. CHLORPHENAMINE (CHLORPHENAMINE) [Concomitant]
  17. PREDNISONE TAB [Concomitant]
  18. TRAMADOLE (TRAMADOL HYDROCHLORIDE) [Concomitant]
  19. FUROSEMIDE [Concomitant]
  20. ALBUMIN (HUMAN) [Concomitant]
  21. CEFTAZIDIME [Concomitant]
  22. AMIKACIN [Concomitant]
  23. MAGNESIUM SULFATE [Concomitant]
  24. POTASSIUM CHLORIDE [Concomitant]
  25. SODIUM BICARBONATE IN PLASTIC CONTAINER [Concomitant]
  26. CALCIUM GLUCONATE [Concomitant]

REACTIONS (6)
  - ABDOMINAL PAIN UPPER [None]
  - IDIOSYNCRATIC DRUG REACTION [None]
  - INFUSION RELATED REACTION [None]
  - MALAISE [None]
  - MUSCULOSKELETAL CHEST PAIN [None]
  - RASH GENERALISED [None]
